FAERS Safety Report 16143347 (Version 1)
Quarter: 2019Q2

REPORT INFORMATION
  Report Type: Report from Study
  Country: JP (occurrence: JP)
  Receive Date: 20190401
  Receipt Date: 20190401
  Transmission Date: 20190711
  Serious: Yes (Death, Hospitalization, Other)
  Sender: FDA-Public Use
  Company Number: JP-AMGEN-JPNNI2017130331

PATIENT
  Age: 69 Year
  Sex: Male
  Weight: 82 kg

DRUGS (16)
  1. DENOSUMAB - DS [Suspect]
     Active Substance: DENOSUMAB
     Dosage: 120 MG, UNK
     Route: 058
     Dates: start: 20150907
  2. DENOSUMAB - DS [Suspect]
     Active Substance: DENOSUMAB
     Dosage: 120 MG, UNK
     Route: 058
     Dates: start: 20151102
  3. DENOSUMAB - DS [Suspect]
     Active Substance: DENOSUMAB
     Dosage: 120 MG, UNK
     Route: 058
     Dates: start: 20160118
  4. DENOTAS [Concomitant]
     Active Substance: CALCIUM CARBONATE\CHOLECALCIFEROL\MAGNESIUM CARBONATE
     Dosage: 1 DF/DAY
     Route: 048
     Dates: start: 20160425, end: 20160723
  5. DENOSUMAB - DS [Suspect]
     Active Substance: DENOSUMAB
     Dosage: 120 MG, UNK
     Route: 058
     Dates: start: 20151005
  6. DENOSUMAB - DS [Suspect]
     Active Substance: DENOSUMAB
     Dosage: 120 MG, UNK
     Route: 058
     Dates: start: 20150706
  7. DENOSUMAB - DS [Suspect]
     Active Substance: DENOSUMAB
     Dosage: 120 MG, UNK
     Route: 058
     Dates: start: 20160425
  8. DENOSUMAB - DS [Suspect]
     Active Substance: DENOSUMAB
     Dosage: 120 MG, UNK
     Route: 058
     Dates: start: 20160620, end: 20160620
  9. DENOSUMAB - DS [Suspect]
     Active Substance: DENOSUMAB
     Dosage: 120 MG, UNK
     Route: 058
     Dates: start: 20150608
  10. DENOSUMAB - DS [Suspect]
     Active Substance: DENOSUMAB
     Dosage: 120 MG, UNK
     Route: 058
     Dates: start: 20150511
  11. DENOSUMAB - DS [Suspect]
     Active Substance: DENOSUMAB
     Dosage: 120 MG, UNK
     Route: 058
     Dates: start: 20150810
  12. DENOSUMAB - DS [Suspect]
     Active Substance: DENOSUMAB
     Indication: BONE GIANT CELL TUMOUR
     Dosage: 120 MILLIGRAM
     Route: 058
     Dates: start: 20150406
  13. DENOSUMAB - DS [Suspect]
     Active Substance: DENOSUMAB
     Dosage: 120 MG, UNK
     Route: 058
     Dates: start: 20151207
  14. DENOSUMAB - DS [Suspect]
     Active Substance: DENOSUMAB
     Dosage: 120 MILLIGRAM
     Route: 058
     Dates: start: 20150413
  15. DENOSUMAB - DS [Suspect]
     Active Substance: DENOSUMAB
     Dosage: 120 MILLIGRAM
     Route: 058
     Dates: start: 20150420
  16. DENOSUMAB - DS [Suspect]
     Active Substance: DENOSUMAB
     Dosage: 120 MG, UNK
     Route: 058
     Dates: start: 20160229

REACTIONS (4)
  - Renal impairment [Unknown]
  - Acute kidney injury [Not Recovered/Not Resolved]
  - Cardiac failure acute [Fatal]
  - Myocardial infarction [Not Recovered/Not Resolved]

NARRATIVE: CASE EVENT DATE: 20160723
